FAERS Safety Report 24262759 (Version 1)
Quarter: 2024Q3

REPORT INFORMATION
  Report Type: Spontaneous
  Country: US (occurrence: US)
  Receive Date: 20240829
  Receipt Date: 20240829
  Transmission Date: 20241017
  Serious: No
  Sender: IMMUNOGEN
  Company Number: IMGN2400404

PATIENT
  Age: 64 Year
  Sex: Female

DRUGS (1)
  1. ELAHERE [Suspect]
     Active Substance: MIRVETUXIMAB SORAVTANSINE-GYNX
     Indication: Product used for unknown indication
     Dosage: UNK, UNK, SECOND DOSE
     Route: 042
     Dates: start: 20240417

REACTIONS (1)
  - Keratitis [Unknown]

NARRATIVE: CASE EVENT DATE: 20240501
